FAERS Safety Report 14164416 (Version 8)
Quarter: 2018Q2

REPORT INFORMATION
  Report Type: Spontaneous
  Country: FR (occurrence: FR)
  Receive Date: 20171107
  Receipt Date: 20180531
  Transmission Date: 20180711
  Serious: Yes (Hospitalization, Other)
  Sender: FDA-Public Use
  Company Number: FR-AUROBINDO-AUR-APL-2017-43210

PATIENT
  Age: 89 Year
  Sex: Female
  Weight: 55 kg

DRUGS (24)
  1. APIXABAN [Interacting]
     Active Substance: APIXABAN
     Route: 065
  2. DIGOXIN. [Interacting]
     Active Substance: DIGOXIN
     Dosage: ()
     Route: 042
  3. DIGOXIN. [Interacting]
     Active Substance: DIGOXIN
     Indication: CONDUCTION DISORDER
     Dosage: 0.13 MILLIGRAM
     Route: 048
  4. CORDARONE [Interacting]
     Active Substance: AMIODARONE HYDROCHLORIDE
     Indication: CONDUCTION DISORDER
     Dosage: UNK ()
     Route: 065
  5. APIXABAN [Interacting]
     Active Substance: APIXABAN
     Dosage: ()
  6. CORDARONE [Interacting]
     Active Substance: AMIODARONE HYDROCHLORIDE
     Indication: ATRIAL FIBRILLATION
     Dosage: 100 MG, BID
     Route: 048
     Dates: start: 20000101, end: 20170111
  7. AMIODARONE [Suspect]
     Active Substance: AMIODARONE
     Indication: ATRIAL FIBRILLATION
     Dosage: 100 MG, TWO TIMES A DAY
     Route: 065
  8. APIXABAN [Interacting]
     Active Substance: APIXABAN
     Dosage: 2.5 MILLIGRAM
     Route: 065
  9. APIXABAN [Interacting]
     Active Substance: APIXABAN
     Dosage: ()
  10. AMIODARONE [Interacting]
     Active Substance: AMIODARONE
     Dosage: 100 MG, BID
     Route: 065
     Dates: start: 20000101, end: 20170111
  11. FUROSEMIDE. [Interacting]
     Active Substance: FUROSEMIDE
     Indication: CARDIAC FAILURE
     Dosage: ()
     Route: 065
  12. APIXABAN [Interacting]
     Active Substance: APIXABAN
     Dosage: 2.5 MG, BID
     Route: 065
  13. DIGOXIN. [Interacting]
     Active Substance: DIGOXIN
     Indication: CARDIAC FAILURE
     Dosage: 0.125 MG, ONCE A DAY
  14. DIGOXIN. [Interacting]
     Active Substance: DIGOXIN
     Indication: ATRIAL FIBRILLATION
     Dosage: 0.5 ABSENT, UNK
     Route: 042
     Dates: start: 20170110
  15. DIGOXIN. [Interacting]
     Active Substance: DIGOXIN
     Dosage: 0.5 ABSENT, UNK
     Route: 042
     Dates: start: 20170108
  16. DIGOXIN. [Interacting]
     Active Substance: DIGOXIN
     Dosage: ()
     Route: 042
  17. CORDARONE [Interacting]
     Active Substance: AMIODARONE HYDROCHLORIDE
     Indication: PRODUCT USED FOR UNKNOWN INDICATION
     Dosage: UNK ()
     Route: 065
     Dates: start: 20170117
  18. APIXABAN [Interacting]
     Active Substance: APIXABAN
     Indication: ATRIAL FIBRILLATION
     Dosage: 5 MILLIGRAM
     Route: 065
  19. APIXABAN [Interacting]
     Active Substance: APIXABAN
     Indication: CEREBROVASCULAR ACCIDENT PROPHYLAXIS
     Dosage: 2.5 MG, BID
     Route: 048
     Dates: start: 20170117
  20. DIGOXIN. [Interacting]
     Active Substance: DIGOXIN
     Indication: TACHYARRHYTHMIA
     Dosage: 0.13 MILLIGRAM
     Route: 048
  21. DIGOXIN. [Interacting]
     Active Substance: DIGOXIN
     Dosage: 0.125 MG, QD
     Route: 048
     Dates: start: 20170111, end: 20170126
  22. DIGOXIN. [Interacting]
     Active Substance: DIGOXIN
     Dosage: UNK
  23. FUROSEMIDE. [Interacting]
     Active Substance: FUROSEMIDE
     Indication: TACHYARRHYTHMIA
  24. DIGOXIN. [Interacting]
     Active Substance: DIGOXIN
     Dosage: ()
     Route: 042

REACTIONS (9)
  - Drug level above therapeutic [Unknown]
  - Drug level increased [Unknown]
  - Drug interaction [Unknown]
  - Orthopnoea [Unknown]
  - Toxicity to various agents [Unknown]
  - Overdose [Recovered/Resolved]
  - Dyspnoea [Unknown]
  - Cardiac failure [Unknown]
  - Tachyarrhythmia [Unknown]

NARRATIVE: CASE EVENT DATE: 20170124
